FAERS Safety Report 4642195-0 (Version None)
Quarter: 2005Q2

REPORT INFORMATION
  Report Type: 
  Country: None (occurrence: None)
  Receive Date: 20050422
  Receipt Date: 20050418
  Transmission Date: 20051028
  Serious: Yes (Hospitalization, Other)
  Sender: FDA-Public Use
  Company Number: 200513241US

PATIENT
  Sex: Female

DRUGS (14)
  1. LANTUS [Suspect]
     Indication: DIABETES MELLITUS NON-INSULIN-DEPENDENT
     Dosage: DOSE UNIT: UNITS
     Dates: start: 20050101
  2. NOVOLOG [Concomitant]
     Dosage: DOSE: SLIDING SCALE
  3. GLUCOPHAGE [Concomitant]
  4. LOTENSIN [Concomitant]
     Dosage: DOSE: NOT PROVIDED
  5. NORVASC [Concomitant]
     Dosage: DOSE: NOT PROVIDED
  6. PROTONIX [Concomitant]
     Dosage: DOSE: NOT PROVIDED
  7. ZOCOR [Concomitant]
     Dosage: DOSE: NOT PROVIDED
  8. KLOR-CON [Concomitant]
     Dosage: DOSE: NOT PROVIDED
  9. WELLBUTRIN [Concomitant]
     Dosage: DOSE: NOT PROVIDED
  10. PLAVIX [Concomitant]
     Dosage: DOSE: NOT PROVIDED
  11. LIPITOR [Concomitant]
     Dosage: DOSE: NOT PROVIDED
  12. METOPROLOL TARTRATE [Concomitant]
     Dosage: DOSE: NOT PROVIDED
  13. ASPIRIN [Concomitant]
     Dosage: DOSE: NOT PROVIDED
  14. AVAPRO [Concomitant]
     Dosage: DOSE: NOT PROVIDED

REACTIONS (10)
  - BLOOD PRESSURE INCREASED [None]
  - CHEST PAIN [None]
  - HYPERGLYCAEMIA [None]
  - HYPOGLYCAEMIA [None]
  - HYPOTONIA [None]
  - INJECTION SITE REACTION [None]
  - OEDEMA PERIPHERAL [None]
  - PNEUMONIA [None]
  - SKIN DISORDER [None]
  - WEIGHT INCREASED [None]
